FAERS Safety Report 5618326-2 (Version None)
Quarter: 2008Q1

REPORT INFORMATION
  Report Type: 
  Country: None (occurrence: None)
  Receive Date: 20080205
  Receipt Date: 20080205
  Transmission Date: 20080703
  Serious: Yes (Life-Threatening, Other)
  Sender: FDA-Public Use
  Company Number: None

PATIENT
  Age: 61 Year
  Sex: Male
  Weight: 117.9352 kg

DRUGS (1)
  1. LUPRON DEPOT [Suspect]
     Dosage: 22.5 MG.  1 TIME  IM
     Route: 030
     Dates: start: 20070919, end: 20071209

REACTIONS (7)
  - ABASIA [None]
  - ASTHENIA [None]
  - DISEASE RECURRENCE [None]
  - DYSSTASIA [None]
  - HEADACHE [None]
  - PAIN IN EXTREMITY [None]
  - PITUITARY-DEPENDENT CUSHING'S SYNDROME [None]
